FAERS Safety Report 16719714 (Version 1)
Quarter: 2019Q3

REPORT INFORMATION
  Report Type: Spontaneous
  Country: US (occurrence: US)
  Receive Date: 20190820
  Receipt Date: 20190820
  Transmission Date: 20191005
  Serious: Yes (Other)
  Sender: FDA-Public Use
  Company Number: US-PFIZER INC-2019349633

PATIENT
  Age: 60 Year
  Sex: Female
  Weight: 63 kg

DRUGS (2)
  1. IBRANCE [Suspect]
     Active Substance: PALBOCICLIB
     Dosage: 100 MG, CYCLIC [1 CAPSULE DAILY 1-21 DAYS]
     Route: 048
     Dates: start: 20190717
  2. IBRANCE [Suspect]
     Active Substance: PALBOCICLIB
     Dosage: 125 MG, CYCLIC (1 CAP DAILY 1-21 DAYS THEN 7DAYS OFF)

REACTIONS (5)
  - Immune system disorder [Unknown]
  - Oesophageal infection [Unknown]
  - Aphasia [Unknown]
  - Alopecia [Unknown]
  - Vomiting [Unknown]
